FAERS Safety Report 7818852-1 (Version None)
Quarter: 2011Q4

REPORT INFORMATION
  Report Type: 
  Country: None (occurrence: None)
  Receive Date: 20111018
  Receipt Date: 20111017
  Transmission Date: 20120403
  Serious: Yes (Hospitalization)
  Sender: FDA-Public Use
  Company Number: FR-BRISTOL-MYERS SQUIBB COMPANY-15253552

PATIENT
  Age: 72 Year
  Sex: Female
  Weight: 70 kg

DRUGS (3)
  1. CETUXIMAB [Suspect]
     Indication: GASTROOESOPHAGEAL CANCER
     Dosage: 5MG/ML:RECENT INF:17JUN2010. TOTAL 3 INF
     Route: 042
     Dates: start: 20100603
  2. CISPLATIN [Suspect]
     Indication: GASTROOESOPHAGEAL CANCER
     Dosage: DAY 1 OF CYCLE:RECENT INF:03JUN2010.REDUCED FROM 80 MG/M2 TO 60 MG/M2,
     Route: 042
     Dates: start: 20100603
  3. XELODA [Suspect]
     Indication: GASTROOESOPHAGEAL CANCER
     Dosage: DAY 1-15:RECENT INF:17JUN2010.REDUCED FROM 1000 MG/M2 TO 750 MG/M2.
     Route: 048
     Dates: start: 20100603

REACTIONS (1)
  - ABDOMINAL PAIN [None]
